FAERS Safety Report 9060109 (Version 1)
Quarter: 2013Q1

REPORT INFORMATION
  Report Type: Spontaneous
  Country: US (occurrence: US)
  Receive Date: 20130212
  Receipt Date: 20130212
  Transmission Date: 20140127
  Serious: Yes (Hospitalization)
  Sender: FDA-Public Use
  Company Number: US-BAYER-2013-017725

PATIENT
  Age: 46 Year
  Sex: Female
  Weight: 67.12 kg

DRUGS (11)
  1. YAZ [Suspect]
     Indication: METRORRHAGIA
  2. GIANVI [Suspect]
  3. AMOXICILLIN [Concomitant]
     Dosage: 875 MG, UNK
     Route: 048
     Dates: start: 20120802
  4. BACLOFEN [Concomitant]
     Dosage: 10 MG, UNK
     Route: 048
     Dates: start: 20120828
  5. NAPROXEN [Concomitant]
     Dosage: 500 MG, UNK
     Route: 048
  6. CYCLOBENZAPRINE [Concomitant]
     Dosage: 10 MG, UNK
     Route: 048
  7. NORCO [Concomitant]
     Dosage: 325MG - 5 MG
     Route: 048
  8. CALCIUM +VIT D [Concomitant]
     Route: 048
  9. TRAMADOL [Concomitant]
  10. METHOCARBAMOL [Concomitant]
  11. ALBUTEROL [Concomitant]
     Route: 045

REACTIONS (1)
  - Pulmonary embolism [None]
